FAERS Safety Report 19714312 (Version 1)
Quarter: 2021Q3

REPORT INFORMATION
  Report Type: Spontaneous
  Country: US (occurrence: US)
  Receive Date: 20210818
  Receipt Date: 20210818
  Transmission Date: 20211014
  Serious: Yes (Life-Threatening, Hospitalization, Disabling, Other)
  Sender: FDA-Public Use
  Company Number: None

PATIENT
  Age: 53 Year
  Sex: Female
  Weight: 75 kg

DRUGS (2)
  1. SELPERCATINIB. [Suspect]
     Active Substance: SELPERCATINIB
     Indication: MEDULLARY THYROID CANCER
     Route: 048
     Dates: start: 20210629, end: 20210705
  2. SELPERCATINIB. [Suspect]
     Active Substance: SELPERCATINIB
     Indication: THYROID CANCER METASTATIC
     Route: 048
     Dates: start: 20210629, end: 20210705

REACTIONS (4)
  - Hemiparesis [None]
  - Headache [None]
  - Asthenia [None]
  - Subarachnoid haemorrhage [None]

NARRATIVE: CASE EVENT DATE: 20210706
